FAERS Safety Report 13663437 (Version 1)
Quarter: 2017Q2

REPORT INFORMATION
  Report Type: Spontaneous
  Country: US (occurrence: US)
  Receive Date: 20170619
  Receipt Date: 20170619
  Transmission Date: 20170830
  Serious: No
  Sender: FDA-Public Use
  Company Number: US-PFIZER INC-2017262159

PATIENT
  Age: 67 Year
  Sex: Female
  Weight: 73.47 kg

DRUGS (1)
  1. SUTENT [Suspect]
     Active Substance: SUNITINIB MALATE
     Indication: RENAL CANCER METASTATIC
     Dosage: 37.5 MG, CYCLIC
     Route: 048
     Dates: start: 20170508

REACTIONS (2)
  - Hypertension [Unknown]
  - Platelet count decreased [Unknown]
